FAERS Safety Report 6938237-X (Version None)
Quarter: 2010Q3

REPORT INFORMATION
  Report Type: 
  Country: None (occurrence: None)
  Receive Date: 20100824
  Receipt Date: 20090904
  Transmission Date: 20110219
  Serious: No
  Sender: FDA-Public Use
  Company Number: A0803528A

PATIENT
  Sex: Female

DRUGS (2)
  1. MALARONE [Suspect]
     Indication: MALARIA PROPHYLAXIS
     Dosage: 1TAB PER DAY
     Route: 048
     Dates: start: 20090101
  2. UNKNOWN [Concomitant]

REACTIONS (3)
  - DYSPHAGIA [None]
  - DYSPNOEA [None]
  - MUSCULAR WEAKNESS [None]
